FAERS Safety Report 9526764 (Version 1)
Quarter: 2013Q3

REPORT INFORMATION
  Report Type: Spontaneous
  Country: US (occurrence: US)
  Receive Date: 20130916
  Receipt Date: 20130916
  Transmission Date: 20140515
  Serious: Yes (Hospitalization)
  Sender: FDA-Public Use
  Company Number: US-GLAXOSMITHKLINE-A1041035A

PATIENT
  Age: 39 Year
  Sex: Female

DRUGS (8)
  1. ADVAIR [Suspect]
     Indication: ASTHMA
     Dosage: 1PUFF TWICE PER DAY
     Route: 055
     Dates: start: 200309
  2. ADVAIR [Suspect]
     Indication: ASTHMA
     Dosage: 1PUFF TWICE PER DAY
     Route: 055
     Dates: start: 200307, end: 200309
  3. PROVENTIL [Suspect]
     Indication: ASTHMA
     Route: 055
  4. THEOPHYLLINE [Suspect]
     Indication: ASTHMA
     Route: 048
  5. PRO-AIR [Concomitant]
  6. ALBUTEROL WITH NEBULIZER [Concomitant]
  7. STEROID NEBULIZER [Concomitant]
  8. UNSPECIFIED MEDICATIONS [Concomitant]

REACTIONS (9)
  - Respiratory failure [Recovering/Resolving]
  - Hospitalisation [Recovering/Resolving]
  - Drug ineffective [Recovering/Resolving]
  - Memory impairment [Recovering/Resolving]
  - Chest discomfort [Recovering/Resolving]
  - Depression [Recovering/Resolving]
  - Asthma [Recovering/Resolving]
  - Loss of consciousness [Recovering/Resolving]
  - Endotracheal intubation [Recovering/Resolving]
